FAERS Safety Report 20449914 (Version 1)
Quarter: 2022Q1

REPORT INFORMATION
  Report Type: Spontaneous
  Country: US (occurrence: None)
  Receive Date: 20220209
  Receipt Date: 20220209
  Transmission Date: 20220423
  Serious: No
  Sender: FDA-Public Use
  Company Number: None

PATIENT
  Age: 47 Year
  Sex: Female

DRUGS (1)
  1. HUMIRA [Suspect]
     Active Substance: ADALIMUMAB
     Indication: Rheumatoid arthritis
     Dosage: 0.4ML EVERY 14 DAYS UNDER THE SKIN?
     Route: 058
     Dates: start: 20220114

REACTIONS (2)
  - Viral rash [None]
  - SARS-CoV-2 test positive [None]

NARRATIVE: CASE EVENT DATE: 20220101
